FAERS Safety Report 16310302 (Version 2)
Quarter: 2019Q2

REPORT INFORMATION
  Report Type: Report from Study
  Country: US (occurrence: US)
  Receive Date: 20190514
  Receipt Date: 20190624
  Transmission Date: 20190711
  Serious: Yes (Hospitalization)
  Sender: FDA-Public Use
  Company Number: US-ACTELION-A-NJ2019-190446

PATIENT
  Sex: Female
  Weight: 92.97 kg

DRUGS (2)
  1. UPTRAVI [Suspect]
     Active Substance: SELEXIPAG
     Indication: PULMONARY ARTERIAL HYPERTENSION
     Dosage: 200 MCG, BID
     Route: 048
  2. TADALAFIL. [Concomitant]
     Active Substance: TADALAFIL

REACTIONS (2)
  - Infection [Unknown]
  - Pulmonary oedema [Unknown]
